FAERS Safety Report 6429629-6 (Version None)
Quarter: 2009Q4

REPORT INFORMATION
  Report Type: 
  Country: None (occurrence: None)
  Receive Date: 20091103
  Receipt Date: 20091019
  Transmission Date: 20100525
  Serious: Yes (Hospitalization)
  Sender: FDA-Public Use
  Company Number: 02100-JPN-05-0545

PATIENT
  Age: 69 Year
  Sex: Male
  Weight: 60.2 kg

DRUGS (1)
  1. PLETAL [Suspect]
     Indication: CEREBRAL INFARCTION
     Dosage: 100 MG, BID ORAL
     Route: 048
     Dates: start: 20050831, end: 20051103

REACTIONS (14)
  - AGGRESSION [None]
  - AGITATION [None]
  - BLOOD BILIRUBIN INCREASED [None]
  - BLOOD CREATINE PHOSPHOKINASE INCREASED [None]
  - BLOOD UREA INCREASED [None]
  - BLOOD URIC ACID INCREASED [None]
  - CONSTIPATION [None]
  - DELIRIUM [None]
  - DELUSION [None]
  - DYSPHAGIA [None]
  - INCOHERENT [None]
  - LOGORRHOEA [None]
  - MANIA [None]
  - PNEUMONIA ASPIRATION [None]
